FAERS Safety Report 9371141 (Version 1)
Quarter: 2013Q2

REPORT INFORMATION
  Report Type: Spontaneous
  Country: US (occurrence: None)
  Receive Date: 20130626
  Receipt Date: 20130626
  Transmission Date: 20140414
  Serious: Yes (Other)
  Sender: FDA-Public Use
  Company Number: None

PATIENT
  Age: 64 Year
  Sex: Male
  Weight: 78.02 kg

DRUGS (1)
  1. MYRBETRIG 25MG ASTELLAS [Suspect]
     Indication: HYPERTONIC BLADDER
     Dosage: 1 TAB 1X/DAY ORAL
     Route: 048
     Dates: start: 20130514, end: 20130605

REACTIONS (1)
  - Diarrhoea [None]
